FAERS Safety Report 14325231 (Version 3)
Quarter: 2018Q1

REPORT INFORMATION
  Report Type: Not Available
  Country: US (occurrence: US)
  Receive Date: 20171226
  Receipt Date: 20180216
  Transmission Date: 20180509
  Serious: Yes (Death, Hospitalization)
  Sender: FDA-Public Use
  Company Number: US-NEUROCRINE BIOSCIENCES INC.-2017NBI02023

PATIENT
  Age: 87 Year
  Sex: Male

DRUGS (4)
  1. INGREZZA [Suspect]
     Active Substance: VALBENAZINE
     Indication: TARDIVE DYSKINESIA
     Route: 048
     Dates: start: 2017, end: 2017
  2. SINEMET [Concomitant]
     Active Substance: CARBIDOPA\LEVODOPA
  3. INGREZZA [Suspect]
     Active Substance: VALBENAZINE
     Route: 048
     Dates: start: 201711, end: 20171225
  4. NUPLAZID [Suspect]
     Active Substance: PIMAVANSERIN TARTRATE
     Indication: PRODUCT USED FOR UNKNOWN INDICATION

REACTIONS (6)
  - Drug ineffective [None]
  - Fall [Not Recovered/Not Resolved]
  - Hallucination [Recovered/Resolved]
  - Dizziness [Not Recovered/Not Resolved]
  - Somnolence [Recovered/Resolved]
  - Death [Fatal]

NARRATIVE: CASE EVENT DATE: 2017
